FAERS Safety Report 7657240-8 (Version None)
Quarter: 2011Q3

REPORT INFORMATION
  Report Type: 
  Country: None (occurrence: None)
  Receive Date: 20110804
  Receipt Date: 20110722
  Transmission Date: 20111222
  Serious: Yes (Hospitalization, Other)
  Sender: FDA-Public Use
  Company Number: PHEH2007US01093

PATIENT
  Sex: Female

DRUGS (52)
  1. TEMOVATE [Concomitant]
     Dosage: 0.05%
  2. CEPHALEXIN [Concomitant]
     Dosage: 500 MG
  3. PROPOXYPHENE NAPSYLATE W/ ACETAMINOPHEN [Concomitant]
  4. AROMASIN [Concomitant]
     Dosage: 25 MG
  5. IBUPROFEN (ADVIL) [Concomitant]
  6. AREDIA [Suspect]
     Indication: RESORPTION BONE INCREASED
     Dosage: UNK
     Route: 042
     Dates: start: 20010402, end: 20020204
  7. LAMICTAL [Concomitant]
     Dosage: 200 MG, UNK
  8. AMOXICILLIN [Concomitant]
     Dosage: 500 MG
  9. DILAUDID [Concomitant]
     Dosage: 4 MG
  10. GENTAK [Concomitant]
     Dosage: 3 MG/GM
  11. PERCOCET [Concomitant]
     Dosage: 5/325 MG
  12. FUROSEMIDE [Concomitant]
     Dosage: 20 MG
  13. SODIUM CHLORIDE [Concomitant]
  14. PACLITAXEL [Concomitant]
  15. ABRAXANE [Concomitant]
  16. ZOMETA [Suspect]
     Indication: RESORPTION BONE INCREASED
     Dates: start: 20020506, end: 20020805
  17. ALPRAZOLAM [Concomitant]
     Dosage: 0.5 MG
  18. OXYCODONE HYDROCHLORIDE [Concomitant]
     Dosage: 80 MG
  19. MS CONTIN [Concomitant]
     Dosage: 100 MG
  20. ALOXI [Concomitant]
  21. FASLODEX [Concomitant]
  22. IONAMIN [Concomitant]
     Dosage: 15 MG
  23. BACTROBAN                               /NET/ [Concomitant]
     Dosage: 2%
  24. MORPHINE SULFATE [Concomitant]
     Dosage: 15 MG
  25. ROXICET [Concomitant]
     Dosage: 5/325 MG
  26. OXYCONTIN [Concomitant]
     Dosage: 80 MG
  27. HYDROMORPHONE HCL [Concomitant]
     Dosage: 4 MG
  28. GEMZAR [Concomitant]
  29. DEXAMETHASONE [Concomitant]
  30. AREDIA [Suspect]
     Dates: start: 20021105, end: 20060220
  31. AMBIEN [Concomitant]
     Dosage: 10 MG
  32. METHADOSE [Concomitant]
     Dosage: 10 MG
  33. DIPHENHYDRAMINE HYDROCHLORIDE [Concomitant]
  34. VINORELBINE [Concomitant]
  35. LASIX [Concomitant]
  36. DURAGESIC-100 [Concomitant]
     Dosage: 100 MCG/HR
  37. TYLENOL W/ CODEINE [Concomitant]
  38. LETROZOLE [Concomitant]
  39. VICODIN [Concomitant]
     Dosage: 5/500 MG
  40. LORAZEPAM [Concomitant]
     Dosage: 1 MG
  41. BIAXIN [Concomitant]
     Dosage: 500 MG
  42. CIPROFLOXACIN HYDROCHLORIDE [Concomitant]
     Dosage: 500 MG
  43. CARBOPLATIN [Concomitant]
  44. POTASSIUM CHLORIDE [Concomitant]
  45. XANAX [Concomitant]
  46. CLINDAMYCIN [Concomitant]
     Dosage: 300 MG, UNK
  47. KEFLEX [Concomitant]
     Dosage: 500 MG, UNK
  48. ACETAMINOPHEN W/ CODEINE [Concomitant]
  49. KYTRIL [Concomitant]
  50. ZANTAC [Concomitant]
  51. ALEVE [Concomitant]
  52. RADIATION [Concomitant]

REACTIONS (30)
  - PULMONARY FIBROSIS [None]
  - PAIN IN EXTREMITY [None]
  - PLATELET COUNT DECREASED [None]
  - OEDEMA [None]
  - HYPOAESTHESIA [None]
  - INJURY [None]
  - MASS [None]
  - PANCREATIC CYST [None]
  - PAIN [None]
  - RADICULITIS [None]
  - HIATUS HERNIA [None]
  - MALAISE [None]
  - METASTASES TO LIVER [None]
  - EMOTIONAL DISTRESS [None]
  - BREAST CANCER RECURRENT [None]
  - HEPATIC STEATOSIS [None]
  - RENAL CYST [None]
  - SPINAL COMPRESSION FRACTURE [None]
  - OSTEONECROSIS OF JAW [None]
  - LYMPHADENOPATHY [None]
  - SPLENOMEGALY [None]
  - HYPOKALAEMIA [None]
  - DECREASED INTEREST [None]
  - HEPATITIS C [None]
  - LUNG NEOPLASM [None]
  - FATIGUE [None]
  - METASTASES TO LUNG [None]
  - METASTASES TO BONE [None]
  - BACK PAIN [None]
  - PARAESTHESIA [None]
